FAERS Safety Report 7410735-4 (Version None)
Quarter: 2011Q2

REPORT INFORMATION
  Report Type: 
  Country: None (occurrence: None)
  Receive Date: 20110413
  Receipt Date: 20110411
  Transmission Date: 20111010
  Serious: Yes (Hospitalization)
  Sender: FDA-Public Use
  Company Number: US-BRISTOL-MYERS SQUIBB COMPANY-14956908

PATIENT
  Age: 65 Year
  Sex: Male

DRUGS (9)
  1. LISINOPRIL [Suspect]
  2. GLIPIZIDE [Concomitant]
  3. PREVACID [Concomitant]
  4. FLEXERIL [Concomitant]
  5. ONGLYZA [Suspect]
     Indication: DIABETES MELLITUS
  6. LOPRESSOR [Concomitant]
  7. LYRICA [Concomitant]
  8. ASPIRIN [Concomitant]
  9. ACTOS [Concomitant]

REACTIONS (1)
  - PANCREATITIS ACUTE [None]
